FAERS Safety Report 25929537 (Version 1)
Quarter: 2025Q4

REPORT INFORMATION
  Report Type: Spontaneous
  Country: US (occurrence: None)
  Receive Date: 20251015
  Receipt Date: 20251015
  Transmission Date: 20260118
  Serious: Yes (Other)
  Sender: FDA-CTU
  Company Number: None

PATIENT
  Age: 53 Year
  Sex: Female

DRUGS (1)
  1. HUMIRA [Suspect]
     Active Substance: ADALIMUMAB
     Dosage: FREQUENCY : EVERY OTHER WEEK;?

REACTIONS (6)
  - Cardiac disorder [None]
  - Dyspnoea [None]
  - Myocardial infarction [None]
  - Peripheral swelling [None]
  - Oedema [None]
  - Hypokinesia [None]
